FAERS Safety Report 21425841 (Version 2)
Quarter: 2022Q4

REPORT INFORMATION
  Report Type: Report from Study
  Country: IT (occurrence: IT)
  Receive Date: 20221008
  Receipt Date: 20221029
  Transmission Date: 20230112
  Serious: Yes (Death, Disabling)
  Sender: FDA-Public Use
  Company Number: IT-ABBVIE-4141585

PATIENT
  Age: 56 Year
  Sex: Female
  Weight: 54 kg

DRUGS (4)
  1. UPADACITINIB [Suspect]
     Active Substance: UPADACITINIB
     Indication: Rheumatoid arthritis
     Dosage: 15 MG
     Route: 048
     Dates: start: 20211224, end: 20220110
  2. METHYLPREDNISOLONE [Concomitant]
     Active Substance: METHYLPREDNISOLONE
     Indication: Rheumatoid arthritis
     Route: 048
     Dates: start: 20210623
  3. Severe acute respiratory syndrome coronavirus 2 (SARS-CoV-2) vaccine [Concomitant]
     Indication: COVID-19 immunisation
     Route: 030
     Dates: start: 20211215, end: 20211215
  4. Severe acute respiratory syndrome coronavirus 2 (SARS-CoV-2) vaccine [Concomitant]
     Indication: COVID-19 immunisation
     Route: 030
     Dates: start: 20210112, end: 20210112

REACTIONS (2)
  - Death [Fatal]
  - Lumbar vertebral fracture [Unknown]

NARRATIVE: CASE EVENT DATE: 20220129
